FAERS Safety Report 7214909-7 (Version None)
Quarter: 2011Q1

REPORT INFORMATION
  Report Type: 
  Country: None (occurrence: None)
  Receive Date: 20110107
  Receipt Date: 20100506
  Transmission Date: 20110831
  Serious: No
  Sender: FDA-Public Use
  Company Number: A0858557A

PATIENT
  Sex: Female

DRUGS (4)
  1. LOVAZA [Suspect]
     Indication: ARTHRITIS
     Dosage: 1CAP ALTERNATE DAYS
     Route: 048
  2. ARTHRITIS MEDICATION [Concomitant]
  3. FOLIC ACID [Concomitant]
  4. METHOTREXATE [Concomitant]

REACTIONS (1)
  - DRY SKIN [None]
